FAERS Safety Report 8361007-5 (Version None)
Quarter: 2012Q2

REPORT INFORMATION
  Report Type: 
  Country: None (occurrence: None)
  Receive Date: 20120515
  Receipt Date: 20120503
  Transmission Date: 20120825
  Serious: No
  Sender: FDA-Public Use
  Company Number: US-ASTRAZENECA-2011SE08405

PATIENT
  Age: 70 Year
  Sex: Male
  Weight: 99.8 kg

DRUGS (11)
  1. SYMBICORT [Suspect]
     Indication: ASTHMA
     Dosage: 1 PUFF TWO TIMES A DAY
     Route: 055
  2. SYMBICORT [Suspect]
     Dosage: 160/ 4.5 MCG 2 PUFFS TWO TIMES A DAY
     Route: 055
     Dates: start: 20100601
  3. PRILOSEC [Concomitant]
     Route: 048
  4. SYMBICORT [Suspect]
     Indication: COUGH
     Dosage: 1 PUFF TWO TIMES A DAY
     Route: 055
  5. SYMBICORT [Suspect]
     Indication: WHEEZING
     Dosage: 1 PUFF TWO TIMES A DAY
     Route: 055
  6. SYMBICORT [Suspect]
     Dosage: 160/ 4.5 MCG 2 PUFFS TWO TIMES A DAY
     Route: 055
     Dates: start: 20100601
  7. SYMBICORT [Suspect]
     Dosage: 160/ 4.5 MCG 2 PUFFS TWO TIMES A DAY
     Route: 055
     Dates: start: 20100601
  8. ALBUTEROL [Concomitant]
  9. LIPITOR [Concomitant]
  10. LOSARTAN POTASSIUM [Concomitant]
  11. SINGULAIR [Concomitant]

REACTIONS (5)
  - COUGH [None]
  - WHEEZING [None]
  - INCORRECT DOSE ADMINISTERED [None]
  - INTENTIONAL DRUG MISUSE [None]
  - OFF LABEL USE [None]
